FAERS Safety Report 7363035-5 (Version None)
Quarter: 2011Q1

REPORT INFORMATION
  Report Type: 
  Country: None (occurrence: None)
  Receive Date: 20110321
  Receipt Date: 20110311
  Transmission Date: 20110831
  Serious: Yes (Other)
  Sender: FDA-Public Use
  Company Number: US-PFIZER INC-2006069883

PATIENT
  Sex: Male

DRUGS (9)
  1. PAXIL [Concomitant]
     Dosage: UNK
     Dates: start: 20030228
  2. NEURONTIN [Suspect]
     Dosage: 300 MG, 2X/DAY
     Dates: start: 20030423
  3. COREG [Concomitant]
     Dosage: UNK
     Dates: start: 20030301, end: 20100101
  4. SYNTHROID [Concomitant]
     Dosage: UNK
     Dates: start: 19940814, end: 20050131
  5. DEPAKOTE [Concomitant]
     Dosage: UNK
     Dates: start: 20030327, end: 20091201
  6. LOTREL [Concomitant]
     Dosage: UNK
     Dates: start: 20030301
  7. NEURONTIN [Suspect]
     Dosage: 300 MG, TWO MORNING TWO EVENING
     Dates: start: 20030318
  8. CARBIDOPA + LEVODOPA [Concomitant]
     Dosage: UNK
     Dates: start: 20030601
  9. NEURONTIN [Suspect]
     Indication: ILL-DEFINED DISORDER
     Dosage: 300 MG, UNK
     Route: 065
     Dates: start: 20030325

REACTIONS (2)
  - SUICIDE ATTEMPT [None]
  - INTENTIONAL OVERDOSE [None]
